FAERS Safety Report 15353879 (Version 2)
Quarter: 2018Q4

REPORT INFORMATION
  Report Type: Spontaneous
  Country: US (occurrence: US)
  Receive Date: 20180905
  Receipt Date: 20181026
  Transmission Date: 20190204
  Serious: Yes (Hospitalization)
  Sender: FDA-Public Use
  Company Number: US-VIFOR (INTERNATIONAL) INC.-VIT-2018-08695

PATIENT
  Age: 69 Year
  Sex: Male
  Weight: 100.33 kg

DRUGS (16)
  1. AMLODIPINE BESYLATE AND BENAZEPRIL HYDROCHLORIDE [Concomitant]
     Active Substance: AMLODIPINE BESYLATE\BENAZEPRIL HYDROCHLORIDE
  2. ANDROGEL [Concomitant]
     Active Substance: TESTOSTERONE
  3. ASTAXANTHIN [Concomitant]
  4. LOSARTAN POTASSIUM. [Concomitant]
     Active Substance: LOSARTAN POTASSIUM
  5. ESTER-C [Concomitant]
     Active Substance: CALCIUM\VITAMINS
  6. CINNAMON. [Concomitant]
     Active Substance: CINNAMON
  7. VELTASSA [Suspect]
     Active Substance: PATIROMER
     Indication: HYPERKALAEMIA
     Route: 048
     Dates: start: 20161026
  8. ASPIRIN. [Concomitant]
     Active Substance: ASPIRIN
  9. FERROUS GLUCONATE [Concomitant]
     Active Substance: FERROUS GLUCONATE
  10. METOLAZONE. [Concomitant]
     Active Substance: METOLAZONE
  11. CARVEDILOL. [Concomitant]
     Active Substance: CARVEDILOL
  12. BASAGLAR [Concomitant]
     Active Substance: INSULIN GLARGINE
  13. FENOFIBRATE. [Concomitant]
     Active Substance: FENOFIBRATE
  14. NOVOLOG [Concomitant]
     Active Substance: INSULIN ASPART
  15. VITAMIN D3 [Concomitant]
     Active Substance: CHOLECALCIFEROL
  16. GINGER. [Concomitant]
     Active Substance: GINGER

REACTIONS (2)
  - Blood pressure abnormal [Unknown]
  - Hospitalisation [Unknown]

NARRATIVE: CASE EVENT DATE: 20180527
